FAERS Safety Report 4517073-8 (Version None)
Quarter: 2004Q4

REPORT INFORMATION
  Report Type: 
  Country: None (occurrence: None)
  Receive Date: 20041029
  Receipt Date: 20040830
  Transmission Date: 20050328
  Serious: No
  Sender: FDA-Public Use
  Company Number: 2003-111198-NL

PATIENT
  Age: 33 Year
  Sex: Female
  Weight: 69.1 kg

DRUGS (2)
  1. NUVARING [Suspect]
     Indication: CONTRACEPTION
     Dosage: DF DAILY
     Dates: start: 20030601
  2. OXYCONTIN [Concomitant]

REACTIONS (1)
  - UNINTENDED PREGNANCY [None]
